FAERS Safety Report 5337741-8 (Version None)
Quarter: 2007Q2

REPORT INFORMATION
  Report Type: 
  Country: None (occurrence: None)
  Receive Date: 20070308
  Receipt Date: 20061207
  Transmission Date: 20071010
  Serious: No
  Sender: FDA-Public Use
  Company Number: 2006-BP-14280BP

PATIENT
  Age: 59 Year
  Sex: Female

DRUGS (6)
  1. SPIRIVA [Suspect]
     Indication: LUNG DISORDER
     Dosage: 18 MCG (18 MCG, 1 IN 1 D), IH
     Route: 025
     Dates: start: 20060401
  2. SPIRIVA [Suspect]
  3. THYROID MED (THYROID THERAPY) [Concomitant]
  4. FLORADIL (ALL OTHER THERAPEUTIC PRODUCTS) [Concomitant]
  5. CLARITIN [Concomitant]
  6. OXYGEN (OXYGEN) [Concomitant]

REACTIONS (1)
  - DRUG INEFFECTIVE [None]
